FAERS Safety Report 4452881-3 (Version None)
Quarter: 2004Q3

REPORT INFORMATION
  Report Type: 
  Country: None (occurrence: None)
  Receive Date: 20040916
  Receipt Date: 20040831
  Transmission Date: 20050211
  Serious: Yes (Disabling)
  Sender: FDA-Public Use
  Company Number: 200406402

PATIENT
  Age: 75 Year
  Sex: Female
  Weight: 68.0396 kg

DRUGS (1)
  1. ACULAR [Suspect]
     Indication: POSTOPERATIVE CARE
     Dosage: 1 DROP QID EYE
     Dates: start: 20030804

REACTIONS (7)
  - BLINDNESS UNILATERAL [None]
  - DRUG INEFFECTIVE [None]
  - EYE PAIN [None]
  - HEADACHE [None]
  - HYPERTENSION [None]
  - PHARMACEUTICAL PRODUCT COMPLAINT [None]
  - VISION BLURRED [None]
